FAERS Safety Report 7584476-7 (Version None)
Quarter: 2011Q2

REPORT INFORMATION
  Report Type: 
  Country: None (occurrence: None)
  Receive Date: 20110630
  Receipt Date: 20110624
  Transmission Date: 20111010
  Serious: Yes (Hospitalization, Other)
  Sender: FDA-Public Use
  Company Number: US-SANOFI-AVENTIS-A03200501825

PATIENT
  Age: 64 Year
  Sex: Female
  Weight: 52.2 kg

DRUGS (14)
  1. PLAVIX [Suspect]
     Indication: ANGIOGRAM
     Dosage: UNIT DOSE: 75 MG
     Route: 048
     Dates: start: 20050329, end: 20051229
  2. PLAVIX [Suspect]
     Indication: ANGIOPLASTY
     Dosage: UNIT DOSE: 75 MG
     Route: 048
     Dates: start: 20050329, end: 20051229
  3. ZYRTEC [Concomitant]
  4. CLONAZEPAM [Concomitant]
  5. PLAVIX [Suspect]
     Indication: STENT PLACEMENT
     Dosage: UNIT DOSE: 75 MG
     Route: 048
     Dates: start: 20050329, end: 20051229
  6. MULTIPLE VITAMINS [Concomitant]
  7. LIPITOR [Concomitant]
     Dosage: UNIT DOSE: 40 MG
     Route: 048
     Dates: start: 20050329
  8. DICLOFENAC SODIUM [Concomitant]
  9. ASPIRIN [Suspect]
     Indication: CORONARY ARTERY DISEASE
     Dosage: UNIT DOSE: 81 MG
     Route: 048
     Dates: start: 20050329
  10. LORAZEPAM [Concomitant]
  11. TYLENOL W/ CODEINE NO. 3 [Concomitant]
  12. SEPTRA [Concomitant]
  13. PLAVIX [Suspect]
     Indication: CORONARY ARTERY DISEASE
     Dosage: UNIT DOSE: 75 MG
     Route: 048
     Dates: start: 20050329, end: 20051229
  14. TOPROL-XL [Suspect]
     Route: 048
     Dates: start: 20050329, end: 20050101

REACTIONS (15)
  - RECTAL HAEMORRHAGE [None]
  - POST PROCEDURAL HAEMORRHAGE [None]
  - HAEMATOMA [None]
  - CONSTIPATION [None]
  - HAEMORRHAGE SUBCUTANEOUS [None]
  - HAEMORRHAGIC DIATHESIS [None]
  - ANAEMIA [None]
  - GASTROINTESTINAL HAEMORRHAGE [None]
  - HYPHAEMA [None]
  - FATIGUE [None]
  - DIZZINESS [None]
  - OCULAR HYPERAEMIA [None]
  - ALTERED STATE OF CONSCIOUSNESS [None]
  - ARTERIOSCLEROSIS CORONARY ARTERY [None]
  - CONTUSION [None]
